FAERS Safety Report 12625535 (Version 1)
Quarter: 2016Q3

REPORT INFORMATION
  Report Type: Spontaneous
  Country: NL (occurrence: NL)
  Receive Date: 20160805
  Receipt Date: 20160805
  Transmission Date: 20161109
  Serious: Yes (Hospitalization, Other)
  Sender: FDA-Public Use
  Company Number: NL-TEVA-681968ACC

PATIENT
  Age: 75 Year
  Sex: Male

DRUGS (3)
  1. METHOTREXATE. [Suspect]
     Active Substance: METHOTREXATE
     Indication: METASTASES TO MENINGES
     Dosage: (6 CYCLES)
     Route: 037
  2. LEVACT [Suspect]
     Active Substance: BENDAMUSTINE HYDROCHLORIDE
     Indication: MARGINAL ZONE LYMPHOMA STAGE IV
     Dosage: CYCLIC (3 CYCLES)
     Route: 042
  3. RITUXIMAB [Suspect]
     Active Substance: RITUXIMAB
     Indication: MARGINAL ZONE LYMPHOMA STAGE IV
     Dosage: (THREE CYCLES)
     Route: 042

REACTIONS (4)
  - Tumour flare [Recovered/Resolved]
  - Metastases to meninges [Recovered/Resolved]
  - Erythema [Recovered/Resolved]
  - Drug intolerance [Unknown]
